FAERS Safety Report 23775171 (Version 1)
Quarter: 2024Q2

REPORT INFORMATION
  Report Type: Spontaneous
  Country: US (occurrence: None)
  Receive Date: 20240423
  Receipt Date: 20240423
  Transmission Date: 20240715
  Serious: Yes (Hospitalization)
  Sender: FDA-Public Use
  Company Number: None

PATIENT
  Age: 36 Year
  Sex: Male

DRUGS (2)
  1. TOPIRAMATE [Suspect]
     Active Substance: TOPIRAMATE
     Indication: Depression
     Dosage: 50MG  TAB EVERY DAY PO?
     Route: 048
     Dates: start: 20230615, end: 20230627
  2. TOPIRAMATE [Suspect]
     Active Substance: TOPIRAMATE
     Indication: Post-traumatic stress disorder

REACTIONS (4)
  - Vision blurred [None]
  - Headache [None]
  - Blindness [None]
  - Somnambulism [None]

NARRATIVE: CASE EVENT DATE: 20230628
